FAERS Safety Report 22539013 (Version 2)
Quarter: 2023Q4

REPORT INFORMATION
  Report Type: Spontaneous
  Country: US (occurrence: US)
  Receive Date: 20230609
  Receipt Date: 20231001
  Transmission Date: 20240110
  Serious: No
  Sender: FDA-Public Use
  Company Number: US-BIOGEN-2023BI01209139

PATIENT
  Age: 11 Year
  Sex: Male

DRUGS (1)
  1. SPINRAZA [Suspect]
     Active Substance: NUSINERSEN
     Indication: Spinal muscular atrophy
     Route: 050
     Dates: start: 20230516

REACTIONS (6)
  - Procedural vomiting [Recovered/Resolved]
  - Swelling [Recovered/Resolved]
  - Discomfort [Unknown]
  - Pain [Recovered/Resolved]
  - Post lumbar puncture syndrome [Unknown]
  - Procedural pain [Unknown]

NARRATIVE: CASE EVENT DATE: 20230517
